FAERS Safety Report 7379802-8 (Version None)
Quarter: 2011Q1

REPORT INFORMATION
  Report Type: 
  Country: None (occurrence: None)
  Receive Date: 20110329
  Receipt Date: 20110317
  Transmission Date: 20110831
  Serious: Yes (Hospitalization, Other)
  Sender: FDA-Public Use
  Company Number: JP-JNJFOC-20110308567

PATIENT
  Sex: Female
  Weight: 23.13 kg

DRUGS (19)
  1. PYDOXAL [Concomitant]
     Indication: PROPHYLAXIS
     Route: 048
  2. DAI-KENCHU-TO [Concomitant]
     Route: 048
  3. MODACIN [Concomitant]
     Route: 042
  4. PREDONINE [Concomitant]
     Route: 042
  5. DECADRON [Concomitant]
     Indication: PROPHYLAXIS
     Route: 042
  6. CIPROFLOXACIN [Concomitant]
     Route: 042
  7. ANTEBATE [Concomitant]
     Dosage: 0.05 %, STARTED ON 05-MAR-2010
     Route: 065
  8. BAKTAR [Concomitant]
     Route: 048
  9. AZUNOL [Concomitant]
     Indication: PROPHYLAXIS
     Route: 049
  10. LAXOBERON [Concomitant]
     Route: 048
  11. KYTRIL [Concomitant]
     Indication: PROPHYLAXIS
     Route: 042
  12. MAGNESIUM OXIDE [Concomitant]
     Route: 048
  13. HEAVY MAGNESIUM OXIDE [Concomitant]
     Route: 048
  14. CONCENTRATED RED CELLS [Concomitant]
     Dosage: DOSE- 4 LUX
     Route: 041
  15. DOXORUBICIN HCL [Suspect]
     Indication: OVARIAN CANCER RECURRENT
     Route: 042
  16. DOXORUBICIN HCL [Suspect]
     Route: 042
  17. DOXORUBICIN HCL [Suspect]
     Route: 042
  18. HOCHU-EKKI-TO [Concomitant]
     Route: 048
  19. FUNGUARD [Concomitant]
     Route: 042

REACTIONS (2)
  - ANAEMIA [None]
  - INTERSTITIAL LUNG DISEASE [None]
